FAERS Safety Report 5000874-X (Version None)
Quarter: 2006Q2

REPORT INFORMATION
  Report Type: 
  Country: None (occurrence: None)
  Receive Date: 20060512
  Receipt Date: 20050412
  Transmission Date: 20061013
  Serious: No
  Sender: FDA-Public Use
  Company Number: US-GLAXOSMITHKLINE-A0553818A

PATIENT
  Sex: Female

DRUGS (1)
  1. RELAFEN [Suspect]
     Dates: start: 20050330

REACTIONS (1)
  - ALOPECIA [None]
